FAERS Safety Report 5907617-3 (Version None)
Quarter: 2008Q4

REPORT INFORMATION
  Report Type: 
  Country: None (occurrence: None)
  Receive Date: 20081003
  Receipt Date: 20080926
  Transmission Date: 20090506
  Serious: Yes (Other)
  Sender: FDA-Public Use
  Company Number: FR-ROCHE-566336

PATIENT
  Sex: Female

DRUGS (10)
  1. BONIVA [Suspect]
     Indication: OSTEOPOROSIS POSTMENOPAUSAL
     Route: 048
     Dates: start: 20070401
  2. LEXOMIL [Concomitant]
     Indication: ANXIETY
     Dosage: DOSAGE REGIMEN: 1/2 DOSE PER DAY
  3. STATIN [Concomitant]
     Indication: DYSLIPIDAEMIA
  4. LANZOR [Concomitant]
     Dosage: DOSAGE REGIMEN: 1 DOSE PER DAY
  5. LANZOR [Concomitant]
     Dosage: RESTARTED AFTER THREE MONTHS. DOSAGE REGIMEN: 1 DOSE PER DAY
  6. LERCAN [Concomitant]
     Indication: HYPERTENSION
     Dosage: DOSAGE REGIMEN: 1 DOSE PER DAY
  7. SERETIDE [Concomitant]
     Dosage: DOSAGE REGIMEN: 2 DOSE PER DAY. DRUG REPORTED AS SERETIDE 250
  8. AMLOD [Concomitant]
     Indication: HYPERTENSION
  9. LODALES [Concomitant]
     Indication: DYSLIPIDAEMIA
     Dosage: DOSE REPORTED AS 1 DOSE PER DAY.
  10. STILNOX [Concomitant]
     Indication: INSOMNIA
     Dosage: DOSE REPORTED AS 1 DOSE PER DAY.

REACTIONS (3)
  - EPICONDYLITIS [None]
  - GALACTORRHOEA [None]
  - MUSCLE CONTRACTIONS INVOLUNTARY [None]
